FAERS Safety Report 7076691-6 (Version None)
Quarter: 2010Q4

REPORT INFORMATION
  Report Type: 
  Country: None (occurrence: None)
  Receive Date: 20101101
  Receipt Date: 20101027
  Transmission Date: 20110411
  Serious: No
  Sender: FDA-Public Use
  Company Number: US-PFIZER INC-2010100497

PATIENT
  Sex: Male
  Weight: 72.6 kg

DRUGS (6)
  1. LISINOPRIL [Suspect]
     Indication: HYPERTENSION
     Dosage: 25 MG, 1X/DAY
     Route: 048
  2. VIAGRA [Suspect]
     Indication: ERECTILE DYSFUNCTION
     Dosage: 100 MG, WEEKLY
     Route: 048
     Dates: start: 20080101
  3. ACETYLSALICYLIC ACID [Suspect]
     Indication: HYPERTENSION
     Dosage: UNK
  4. LISINOPRIL AND HYDROCHLOROTHIAZIDE [Suspect]
     Indication: HYPERTENSION
     Dosage: 20/25, DAILY
     Route: 048
     Dates: start: 20050101
  5. ATENOLOL [Suspect]
     Indication: HYPERTENSION
     Dosage: 25 MG, DAILY
  6. ATENOLOL [Suspect]
     Dosage: UNK, 1X/DAY
     Route: 048

REACTIONS (4)
  - MUSCLE SPASMS [None]
  - POLLAKIURIA [None]
  - RASH GENERALISED [None]
  - RESTLESS LEGS SYNDROME [None]
